FAERS Safety Report 5503913-2 (Version None)
Quarter: 2007Q4

REPORT INFORMATION
  Report Type: 
  Country: None (occurrence: None)
  Receive Date: 20071030
  Receipt Date: 20071030
  Transmission Date: 20080405
  Serious: Yes (Hospitalization)
  Sender: FDA-Public Use
  Company Number: None

PATIENT
  Sex: Male
  Weight: 90.7194 kg

DRUGS (3)
  1. CETUXIMAB [Suspect]
     Indication: GASTROOESOPHAGEAL CANCER
     Dosage: 130MGM2 QWEEKLY IV DRIP
     Route: 041
     Dates: start: 20070717, end: 20071101
  2. XELODA [Concomitant]
  3. OXALIPLATIN [Concomitant]

REACTIONS (2)
  - DEHYDRATION [None]
  - TACHYCARDIA [None]
